FAERS Safety Report 12412048 (Version 2)
Quarter: 2016Q4

REPORT INFORMATION
  Report Type: Spontaneous
  Country: GB (occurrence: GB)
  Receive Date: 20160527
  Receipt Date: 20161206
  Transmission Date: 20170207
  Serious: Yes (Disabling, Other)
  Sender: FDA-Public Use
  Company Number: GB-PFIZER INC-2016274194

PATIENT
  Age: 34 Year
  Sex: Male
  Weight: 79 kg

DRUGS (3)
  1. ISPAGHULA EXTRACT\PSYLLIUM [Concomitant]
     Active Substance: PLANTAGO OVATA SEED\PLANTAGO SEED
     Dosage: 1 DF, 1X/DAY
     Dates: start: 20151120
  2. ANUGESIC HC [Concomitant]
     Dosage: 1 DF, UNK
     Dates: start: 20150729
  3. VIAGRA [Suspect]
     Active Substance: SILDENAFIL CITRATE
     Indication: ERECTILE DYSFUNCTION
     Dosage: 50 MG, UNK
     Dates: start: 20160514, end: 2016

REACTIONS (3)
  - Tinnitus [Recovering/Resolving]
  - Deafness [Recovering/Resolving]
  - Dizziness [Recovering/Resolving]

NARRATIVE: CASE EVENT DATE: 20160514
